FAERS Safety Report 25431478 (Version 1)
Quarter: 2025Q2

REPORT INFORMATION
  Report Type: Spontaneous
  Country: DE (occurrence: DE)
  Receive Date: 20250613
  Receipt Date: 20250613
  Transmission Date: 20250716
  Serious: Yes (Other)
  Sender: ASCEND THERAPEUTICS US, LLC
  Company Number: DE-Ascend Therapeutics US, LLC-2178421

PATIENT
  Age: 53 Year
  Sex: Female

DRUGS (5)
  1. ESTROGEL [Suspect]
     Active Substance: ESTRADIOL
     Indication: Sleep disorder
     Dates: start: 2022, end: 20250523
  2. ESTROGEL [Suspect]
     Active Substance: ESTRADIOL
     Indication: Hot flush
  3. ESTRADIOL [Suspect]
     Active Substance: ESTRADIOL
     Dates: start: 2022, end: 20250523
  4. LEVOTHYROXINE [Concomitant]
     Active Substance: LEVOTHYROXINE
     Dates: start: 2023
  5. PROGESTERONE [Suspect]
     Active Substance: PROGESTERONE
     Dates: start: 2022, end: 20250527

REACTIONS (9)
  - Postmenopausal haemorrhage [Not Recovered/Not Resolved]
  - Hypovitaminosis [Unknown]
  - Breast swelling [Recovering/Resolving]
  - Breast discomfort [Recovering/Resolving]
  - Hyperhidrosis [Recovering/Resolving]
  - Irritability [Recovering/Resolving]
  - Anxiety [Recovering/Resolving]
  - Restlessness [Recovering/Resolving]
  - Coeliac disease [Unknown]

NARRATIVE: CASE EVENT DATE: 20240101
